FAERS Safety Report 9509563 (Version 1)
Quarter: 2013Q3

REPORT INFORMATION
  Report Type: Spontaneous
  Country: US (occurrence: US)
  Receive Date: 20130909
  Receipt Date: 20130909
  Transmission Date: 20140515
  Serious: No
  Sender: FDA-Public Use
  Company Number: US-BRISTOL-MYERS SQUIBB COMPANY-17227505

PATIENT
  Sex: Female

DRUGS (3)
  1. ABILIFY [Suspect]
     Indication: MAJOR DEPRESSION
     Dosage: STOPPED 2 WEEKS AGO
     Dates: start: 2010, end: 201212
  2. PAROXETINE [Concomitant]
  3. ZOLPIDEM [Concomitant]

REACTIONS (1)
  - Dyskinesia [Not Recovered/Not Resolved]
